FAERS Safety Report 10746302 (Version 1)
Quarter: 2015Q1

REPORT INFORMATION
  Report Type: Spontaneous
  Country: US (occurrence: US)
  Receive Date: 20150128
  Receipt Date: 20150128
  Transmission Date: 20150721
  Serious: Yes (Death, Hospitalization, Other)
  Sender: FDA-Public Use
  Company Number: US-MERCK-1501USA010698

PATIENT
  Sex: Male
  Weight: 112.47 kg

DRUGS (2)
  1. JANUVIA [Suspect]
     Active Substance: SITAGLIPTIN PHOSPHATE
     Indication: TYPE 2 DIABETES MELLITUS
     Dosage: 100 MG, QD
     Route: 048
     Dates: start: 20071030, end: 201108
  2. VICTOZA [Suspect]
     Active Substance: LIRAGLUTIDE
     Dosage: UNK
     Dates: start: 2011, end: 201310

REACTIONS (30)
  - Haemorrhoids [Unknown]
  - Gastric neoplasm [Unknown]
  - Peptic ulcer [Unknown]
  - Blood potassium decreased [Unknown]
  - Metastases to liver [Unknown]
  - Hyperkalaemia [Recovered/Resolved with Sequelae]
  - Pancreatic carcinoma metastatic [Unknown]
  - Metastases to lymph nodes [Unknown]
  - Adverse event [Unknown]
  - Pulmonary embolism [Unknown]
  - Anxiety [Unknown]
  - Deep vein thrombosis [Unknown]
  - Internal fixation of fracture [Unknown]
  - Gastric polyps [Unknown]
  - Iron deficiency anaemia [Unknown]
  - Dyslipidaemia [Unknown]
  - Coronary artery disease [Unknown]
  - Constipation [Unknown]
  - Diverticulum intestinal [Unknown]
  - Pulmonary thrombosis [Unknown]
  - Drug ineffective [Unknown]
  - Metastases to spleen [Unknown]
  - Acute kidney injury [Unknown]
  - Renal failure [Unknown]
  - Haemoglobin decreased [Unknown]
  - Death [Fatal]
  - Adverse event [Unknown]
  - Umbilical hernia [Unknown]
  - Gastrooesophageal reflux disease [Unknown]
  - Culture urine positive [Unknown]

NARRATIVE: CASE EVENT DATE: 20080501
